FAERS Safety Report 12587371 (Version 2)
Quarter: 2016Q3

REPORT INFORMATION
  Report Type: Spontaneous
  Country: CN (occurrence: CN)
  Receive Date: 20160725
  Receipt Date: 20160727
  Transmission Date: 20161109
  Serious: Yes (Hospitalization, Other)
  Sender: FDA-Public Use
  Company Number: CN-JNJFOC-20160712497

PATIENT
  Sex: Male

DRUGS (10)
  1. DOXYCYCLINE HYDROCHLORIDE [Interacting]
     Active Substance: DOXYCYCLINE HYDROCHLORIDE
     Indication: PYREXIA
     Route: 041
     Dates: start: 20130921
  2. IBUPROFEN. [Suspect]
     Active Substance: IBUPROFEN
     Indication: PYREXIA
     Route: 048
     Dates: start: 201309
  3. SODIUM CHLORIDE. [Suspect]
     Active Substance: SODIUM CHLORIDE
     Indication: OROPHARYNGEAL PAIN
     Route: 041
     Dates: start: 20130921
  4. SODIUM CHLORIDE. [Suspect]
     Active Substance: SODIUM CHLORIDE
     Indication: PYREXIA
     Route: 041
     Dates: start: 20130921
  5. IBUPROFEN. [Suspect]
     Active Substance: IBUPROFEN
     Indication: OROPHARYNGEAL PAIN
     Route: 048
  6. IBUPROFEN. [Suspect]
     Active Substance: IBUPROFEN
     Indication: OROPHARYNGEAL PAIN
     Route: 048
     Dates: start: 20130921
  7. IBUPROFEN. [Suspect]
     Active Substance: IBUPROFEN
     Indication: OROPHARYNGEAL PAIN
     Route: 048
     Dates: start: 201309
  8. IBUPROFEN. [Suspect]
     Active Substance: IBUPROFEN
     Indication: PYREXIA
     Route: 048
  9. IBUPROFEN. [Suspect]
     Active Substance: IBUPROFEN
     Indication: PYREXIA
     Route: 048
     Dates: start: 20130921
  10. DOXYCYCLINE HYDROCHLORIDE [Interacting]
     Active Substance: DOXYCYCLINE HYDROCHLORIDE
     Indication: OROPHARYNGEAL PAIN
     Route: 041
     Dates: start: 20130921

REACTIONS (4)
  - Renal impairment [Recovering/Resolving]
  - Drug interaction [Unknown]
  - Drug effect incomplete [Unknown]
  - Haematuria [Recovering/Resolving]

NARRATIVE: CASE EVENT DATE: 201309
